FAERS Safety Report 25014589 (Version 2)
Quarter: 2025Q1

REPORT INFORMATION
  Report Type: Spontaneous
  Country: US (occurrence: US)
  Receive Date: 20250226
  Receipt Date: 20250317
  Transmission Date: 20250409
  Serious: No
  Sender: BLUEPRINT MEDICINES
  Company Number: US-Blueprint Medicines Corporation-2025-AER-00340

PATIENT
  Age: 66 Year
  Sex: Male

DRUGS (2)
  1. AYVAKIT [Suspect]
     Active Substance: AVAPRITINIB
     Indication: Gastrointestinal stromal tumour
     Route: 065
     Dates: start: 20250122
  2. AYVAKIT [Suspect]
     Active Substance: AVAPRITINIB
     Indication: Prostate cancer
     Route: 065
     Dates: start: 20250122, end: 202503

REACTIONS (4)
  - Memory impairment [Unknown]
  - Weight decreased [Unknown]
  - Decreased appetite [Unknown]
  - Abnormal behaviour [Unknown]
